FAERS Safety Report 14127089 (Version 1)
Quarter: 2017Q4

REPORT INFORMATION
  Report Type: Spontaneous
  Country: US (occurrence: US)
  Receive Date: 20171026
  Receipt Date: 20171026
  Transmission Date: 20180321
  Serious: No
  Sender: FDA-Public Use
  Company Number: US-ENDO PHARMACEUTICALS INC-2016-007145

PATIENT
  Sex: Male
  Weight: 99.88 kg

DRUGS (3)
  1. CARISOPRODOL TABLETS 350MG [Suspect]
     Active Substance: CARISOPRODOL
     Route: 065
     Dates: start: 1990
  2. ZOLPIDEM TARTRATE TABLETS [Concomitant]
     Active Substance: ZOLPIDEM TARTRATE
     Indication: PRODUCT USED FOR UNKNOWN INDICATION
  3. CARISOPRODOL TABLETS 350MG [Suspect]
     Active Substance: CARISOPRODOL
     Route: 065
     Dates: start: 2016

REACTIONS (4)
  - Feeling abnormal [Unknown]
  - Impatience [Unknown]
  - Affect lability [Unknown]
  - Vomiting [Unknown]

NARRATIVE: CASE EVENT DATE: 2016
